FAERS Safety Report 8299238-5 (Version None)
Quarter: 2012Q2

REPORT INFORMATION
  Report Type: 
  Country: None (occurrence: None)
  Receive Date: 20120419
  Receipt Date: 20120418
  Transmission Date: 20120825
  Serious: No
  Sender: FDA-Public Use
  Company Number: US-PFIZER INC-2012096763

PATIENT
  Sex: Female
  Weight: 68.027 kg

DRUGS (2)
  1. CELEBREX [Suspect]
     Indication: MYALGIA
  2. CELEBREX [Suspect]
     Indication: ARTHRITIS
     Dosage: UNK
     Route: 048

REACTIONS (1)
  - FIBROMYALGIA [None]
